FAERS Safety Report 25759043 (Version 1)
Quarter: 2025Q3

REPORT INFORMATION
  Report Type: Report from Study
  Country: GB (occurrence: GB)
  Receive Date: 20250904
  Receipt Date: 20250904
  Transmission Date: 20251021
  Serious: Yes (Other)
  Sender: CELLTRION
  Company Number: GB-CELLTRION INC.-2024GB017388

PATIENT

DRUGS (3)
  1. ADALIMUMAB-AATY [Suspect]
     Active Substance: ADALIMUMAB-AATY
     Indication: Axial spondyloarthritis
     Dosage: 40 MG FORTNIGHTLY; INJECTION PENS - INJECT ONE PRE-FILLED PEN EVERY TWO WEEKS
     Route: 058
     Dates: start: 202401
  2. ADALIMUMAB-AATY [Suspect]
     Active Substance: ADALIMUMAB-AATY
     Dosage: 40 MG FORTNIGHTLY; INJECTION PENS - INJECT ONE PRE-FILLED PEN EVERY TWO WEEKS
     Route: 058
     Dates: start: 20250406, end: 20250415
  3. ADALIMUMAB-AATY [Suspect]
     Active Substance: ADALIMUMAB-AATY
     Dates: start: 20250817

REACTIONS (3)
  - Pituitary tumour [Unknown]
  - Intentional dose omission [Recovered/Resolved]
  - Infectious mononucleosis [Unknown]
